FAERS Safety Report 4389994-0 (Version None)
Quarter: 2004Q2

REPORT INFORMATION
  Report Type: 
  Country: None (occurrence: None)
  Receive Date: 20040630
  Receipt Date: 20040616
  Transmission Date: 20050107
  Serious: Yes (Disabling)
  Sender: FDA-Public Use
  Company Number: 2004034722

PATIENT
  Age: 62 Year
  Sex: Female

DRUGS (9)
  1. ATARAX [Suspect]
     Indication: ILL-DEFINED DISORDER
     Dosage: 100 MG, ORAL
     Route: 048
     Dates: start: 20040216, end: 20040216
  2. METOPIMAZINE (METOPIMAZINE) [Suspect]
     Indication: ILL-DEFINED DISORDER
     Dates: start: 20040219, end: 20040222
  3. PREDNISOLONE SODIUM SULFOBENZOATE (PREDNISOLONE SODIUM SULFOBENZOATE) [Suspect]
     Indication: ILL-DEFINED DISORDER
     Dosage: ORAL
     Route: 048
     Dates: start: 20040219, end: 20040222
  4. METHYLPREDNISOLONE [Suspect]
     Indication: ILL-DEFINED DISORDER
     Dosage: 40 MG, INTRAVENOUS
     Route: 042
     Dates: start: 20040218, end: 20040218
  5. ONDANSETRON HCL [Concomitant]
  6. PRAVASTATIN SODIUM [Concomitant]
  7. TELMISARTAN (TELMISARTAN) [Concomitant]
  8. XALACOM (LATANOPROST, TIMOLOL MALEATE) [Concomitant]
  9. ALL OTHER THERAPEUTIC PRODUCTS (ALL OTHER THERAPEUTIC PRODUCTS) [Concomitant]

REACTIONS (2)
  - BREAST NEOPLASM [None]
  - GLAUCOMA [None]
